FAERS Safety Report 15108217 (Version 3)
Quarter: 2018Q3

REPORT INFORMATION
  Report Type: Spontaneous
  Country: JP (occurrence: JP)
  Receive Date: 20180705
  Receipt Date: 20180927
  Transmission Date: 20181010
  Serious: Yes (Hospitalization, Other)
  Sender: FDA-Public Use
  Company Number: JP-ROCHE-2149337

PATIENT
  Age: 79 Year
  Sex: Male

DRUGS (10)
  1. OXALIPLATIN. [Concomitant]
     Active Substance: OXALIPLATIN
     Dosage: DOSAGE IS UNCERTAIN.
     Route: 041
  2. FLUOROURACIL. [Concomitant]
     Active Substance: FLUOROURACIL
     Dosage: DOSAGE IS UNCERTAIN.
     Route: 041
  3. AVASTIN [Suspect]
     Active Substance: BEVACIZUMAB
     Dosage: DOSAGE IS UNCERTAIN.
     Route: 041
  4. XELODA [Suspect]
     Active Substance: CAPECITABINE
     Indication: RECTAL CANCER
     Dosage: DOSAGE IS UNCERTAIN.
     Route: 048
  5. LEVOFOLINATE [Concomitant]
     Active Substance: LEVOLEUCOVORIN CALCIUM
     Indication: RECTAL CANCER
     Dosage: DOSAGE IS UNCERTAIN.
     Route: 041
  6. AVASTIN [Suspect]
     Active Substance: BEVACIZUMAB
     Indication: RECTAL CANCER
     Dosage: DOSAGE IS UNCERTAIN.
     Route: 041
  7. OXALIPLATIN. [Concomitant]
     Active Substance: OXALIPLATIN
     Indication: RECTAL CANCER
     Dosage: DOSAGE IS UNCERTAIN.
     Route: 041
  8. IRINOTECAN HYDROCHLORIDE. [Concomitant]
     Active Substance: IRINOTECAN HYDROCHLORIDE
     Indication: RECTAL CANCER
     Dosage: DOSAGE IS UNCERTAIN.
     Route: 041
  9. PANITUMUMAB [Concomitant]
     Active Substance: PANITUMUMAB
     Indication: RECTAL CANCER
     Dosage: DOSAGE IS UNCERTAIN.
     Route: 041
  10. FLUOROURACIL. [Concomitant]
     Active Substance: FLUOROURACIL
     Indication: RECTAL CANCER
     Dosage: DOSAGE IS UNCERTAIN.
     Route: 040

REACTIONS (2)
  - Stoma site haemorrhage [Recovered/Resolved]
  - Stomal varices [Unknown]

NARRATIVE: CASE EVENT DATE: 201712
